FAERS Safety Report 10024583 (Version 1)
Quarter: 2014Q1

REPORT INFORMATION
  Report Type: Report from Study
  Country: US (occurrence: None)
  Receive Date: 20140204
  Receipt Date: 20140204
  Transmission Date: 20141002
  Serious: Yes (Other)
  Sender: FDA-Public Use
  Company Number: 2013UCU075000259

PATIENT
  Age: 71 Year
  Sex: Male
  Weight: 88.45 kg

DRUGS (6)
  1. HUMIRA NO STUDY MEDICATION [Suspect]
     Indication: CROHN^S DISEASE
     Dates: start: 2008
  2. 6-MP [Suspect]
     Dates: start: 200711, end: 2008
  3. PREDNISONE [Concomitant]
  4. INFLIXIMAB [Concomitant]
  5. FLUORORACIL [Concomitant]
  6. MITOMYCIN [Concomitant]

REACTIONS (4)
  - Rectal haemorrhage [None]
  - Anal cancer stage II [None]
  - Lymphoma [None]
  - Neoplasm malignant [None]
